FAERS Safety Report 15719741 (Version 3)
Quarter: 2019Q1

REPORT INFORMATION
  Report Type: Spontaneous
  Country: US (occurrence: US)
  Receive Date: 20181213
  Receipt Date: 20190103
  Transmission Date: 20190417
  Serious: Yes (Disabling, Other)
  Sender: FDA-Public Use
  Company Number: US-BRISTOL-MYERS SQUIBB COMPANY-BMS-2018-114887

PATIENT
  Age: 55 Year
  Sex: Male

DRUGS (4)
  1. KENALOG-40 [Suspect]
     Active Substance: TRIAMCINOLONE ACETONIDE
     Indication: EYE INFLAMMATION
     Route: 065
  2. KENALOG-40 [Suspect]
     Active Substance: TRIAMCINOLONE ACETONIDE
     Indication: MACULAR DEGENERATION
     Dosage: UNK UNK, QD
     Route: 031
     Dates: start: 20171106
  3. INSULIN [Concomitant]
     Active Substance: INSULIN NOS
     Indication: PRODUCT USED FOR UNKNOWN INDICATION
     Dosage: UNK
     Route: 065
  4. GABAPENTIN. [Concomitant]
     Active Substance: GABAPENTIN
     Indication: PRODUCT USED FOR UNKNOWN INDICATION
     Dosage: UNK
     Route: 065

REACTIONS (5)
  - Intraocular pressure increased [Unknown]
  - Product use issue [Unknown]
  - Product use in unapproved indication [Unknown]
  - Blindness [Unknown]
  - Optic nerve injury [Unknown]

NARRATIVE: CASE EVENT DATE: 20171106
